FAERS Safety Report 6717885-6 (Version None)
Quarter: 2010Q2

REPORT INFORMATION
  Report Type: 
  Country: None (occurrence: None)
  Receive Date: 20100510
  Receipt Date: 20100502
  Transmission Date: 20101027
  Serious: Yes (Other)
  Sender: FDA-Public Use
  Company Number: US-JNJFOC-20100501028

PATIENT

DRUGS (1)
  1. CHILDRENS TYLENOL PLUS COLD AND COUGH DYE FREE GRAPE [Suspect]
     Indication: MALAISE

REACTIONS (2)
  - ABNORMAL BEHAVIOUR [None]
  - PRODUCT QUALITY ISSUE [None]
